FAERS Safety Report 6697814-4 (Version None)
Quarter: 2010Q2

REPORT INFORMATION
  Report Type: 
  Country: None (occurrence: None)
  Receive Date: 20100426
  Receipt Date: 20100422
  Transmission Date: 20101027
  Serious: Yes (Death, Hospitalization)
  Sender: FDA-Public Use
  Company Number: JP-BRISTOL-MYERS SQUIBB COMPANY-14633861

PATIENT
  Age: 74 Year
  Sex: Male

DRUGS (17)
  1. TAXOL [Suspect]
     Indication: NON-SMALL CELL LUNG CANCER
     Route: 041
     Dates: start: 20090508, end: 20090508
  2. TAXOL [Suspect]
     Indication: LUNG NEOPLASM MALIGNANT
     Route: 041
     Dates: start: 20090508, end: 20090508
  3. CARBOMERCK [Suspect]
     Indication: NON-SMALL CELL LUNG CANCER
     Route: 041
     Dates: start: 20090508, end: 20090508
  4. CARBOMERCK [Suspect]
     Indication: LUNG NEOPLASM MALIGNANT
     Route: 041
     Dates: start: 20090508, end: 20090508
  5. ASPIRIN [Concomitant]
     Route: 048
  6. LASIX [Concomitant]
     Route: 048
  7. HERBESSER [Concomitant]
     Route: 048
  8. ITOROL [Concomitant]
     Route: 065
  9. CODEINE SULFATE [Concomitant]
     Route: 048
  10. THEOPHYLLINE [Concomitant]
     Route: 048
  11. OMEPRAL [Concomitant]
     Route: 048
  12. MUCODYNE [Concomitant]
     Route: 048
  13. MOBIC [Concomitant]
     Route: 048
  14. RESTAMIN [Concomitant]
     Route: 048
     Dates: start: 20090508
  15. DECADRON [Concomitant]
     Route: 041
     Dates: start: 20090508
  16. SEROTONE [Concomitant]
     Route: 041
     Dates: start: 20090508
  17. ZANTAC [Concomitant]
     Route: 041
     Dates: start: 20090508

REACTIONS (5)
  - ILEUS PARALYTIC [None]
  - NEUTROPHIL COUNT DECREASED [None]
  - PERITONITIS [None]
  - SEPTIC SHOCK [None]
  - WHITE BLOOD CELL COUNT DECREASED [None]
